FAERS Safety Report 18122911 (Version 2)
Quarter: 2020Q3

REPORT INFORMATION
  Report Type: Spontaneous
  Country: AU (occurrence: AU)
  Receive Date: 20200807
  Receipt Date: 20200823
  Transmission Date: 20201103
  Serious: Yes (Other)
  Sender: FDA-Public Use
  Company Number: AU-ACCORD-194007

PATIENT
  Sex: Female

DRUGS (4)
  1. PLAQUENIL [Suspect]
     Active Substance: HYDROXYCHLOROQUINE SULFATE
     Indication: URTICARIA
  2. MONTELUKAST [Suspect]
     Active Substance: MONTELUKAST SODIUM
     Indication: URTICARIA
     Dates: start: 202007
  3. HYDROXYCHLOROQUINE [Suspect]
     Active Substance: HYDROXYCHLOROQUINE
     Indication: URTICARIA
     Dosage: DAILY
  4. FEXOFENADINE [Suspect]
     Active Substance: FEXOFENADINE HYDROCHLORIDE
     Indication: URTICARIA
     Dosage: THREE TIMES A DAY

REACTIONS (5)
  - Headache [Recovered/Resolved]
  - Impaired work ability [Unknown]
  - Treatment failure [Unknown]
  - Off label use [Unknown]
  - Impaired quality of life [Unknown]
